FAERS Safety Report 23874410 (Version 1)
Quarter: 2024Q2

REPORT INFORMATION
  Report Type: Spontaneous
  Country: GB (occurrence: GB)
  Receive Date: 20240520
  Receipt Date: 20240520
  Transmission Date: 20240716
  Serious: Yes (Other)
  Sender: FDA-Public Use
  Company Number: GB-SA-2019SA050547

PATIENT
  Sex: Female

DRUGS (3)
  1. CARBAMAZEPINE [Suspect]
     Active Substance: CARBAMAZEPINE
     Indication: Product used for unknown indication
     Dosage: 600 MG, Q12H (600 MG, BID,600 MG IN THE MORNING AND 600MG AT NIGHT)
     Route: 065
  2. SABRIL [Suspect]
     Active Substance: VIGABATRIN
     Indication: Product used for unknown indication
     Dosage: (OVER 30 YEARS)
     Route: 065
  3. EPILIM [Suspect]
     Active Substance: VALPROATE SODIUM
     Indication: Product used for unknown indication
     Dosage: UNK, Q12H (1200 MG OF EPILIM IN THE MORNING AND 1300 MG AT NIGHT)
     Route: 065

REACTIONS (1)
  - Visual impairment [Unknown]
